FAERS Safety Report 19193957 (Version 1)
Quarter: 2021Q2

REPORT INFORMATION
  Report Type: Spontaneous
  Country: US (occurrence: US)
  Receive Date: 20210429
  Receipt Date: 20210429
  Transmission Date: 20210717
  Serious: No
  Sender: FDA-Public Use
  Company Number: None

PATIENT
  Age: 41 Year
  Sex: Female
  Weight: 78.75 kg

DRUGS (2)
  1. NEXPLANON [Concomitant]
     Active Substance: ETONOGESTREL
  2. CREST PRO?HEALTH CLEAN MINT GEL [Suspect]
     Active Substance: STANNOUS FLUORIDE
     Indication: DENTAL DISORDER PROPHYLAXIS
     Dosage: ?          QUANTITY:130 PASTE;?
     Dates: start: 20210423, end: 20210423

REACTIONS (4)
  - Lip erythema [None]
  - Lip blister [None]
  - Oral discomfort [None]
  - Paraesthesia oral [None]

NARRATIVE: CASE EVENT DATE: 20210423
